FAERS Safety Report 5694927-0 (Version None)
Quarter: 2008Q2

REPORT INFORMATION
  Report Type: 
  Country: None (occurrence: None)
  Receive Date: 20080404
  Receipt Date: 20080326
  Transmission Date: 20081010
  Serious: Yes (Death)
  Sender: FDA-Public Use
  Company Number: US-ROCHE-551865

PATIENT
  Sex: Female
  Weight: 90.3 kg

DRUGS (15)
  1. PEGASYS [Suspect]
     Indication: HEPATITIS C
     Dosage: PROTOCOL DOSE: 135MCG/WEEK FOR 4 WEEKS, THEN INCREASING TO 180MCG/WEEK FOR THE NEXT 44 WEEKS
     Route: 058
     Dates: start: 20060619
  2. PEGASYS [Suspect]
     Route: 058
     Dates: end: 20070210
  3. RIBAVIRIN [Suspect]
     Indication: HEPATITIS C
     Route: 048
     Dates: start: 20060619, end: 20060911
  4. PROGRAF [Concomitant]
     Dates: start: 20070304, end: 20080302
  5. ARANESP [Concomitant]
     Dates: start: 20071101, end: 20080302
  6. PRILOSEC [Concomitant]
     Dates: start: 20070308, end: 20080302
  7. ACTIGALL [Concomitant]
     Dates: start: 20070303, end: 20080302
  8. DAPSONE [Concomitant]
     Dates: start: 20070323, end: 20080302
  9. VIVELLE [Concomitant]
     Route: 062
     Dates: start: 20070307, end: 20080302
  10. ASPIRIN [Concomitant]
     Dates: start: 20070308, end: 20080302
  11. AMBIEN [Concomitant]
     Dates: start: 20070306, end: 20080301
  12. EFFEXOR XR [Concomitant]
     Dates: start: 20070601, end: 20080302
  13. METOPROLOL TARTRATE [Concomitant]
     Dates: start: 20071113, end: 20080302
  14. CHLORTHALIDONE [Concomitant]
     Dates: start: 20071113, end: 20080302
  15. COMPAZINE [Concomitant]
     Dates: start: 20070813, end: 20080302

REACTIONS (1)
  - DEATH [None]
